FAERS Safety Report 10515464 (Version 1)
Quarter: 2014Q3

REPORT INFORMATION
  Report Type: Spontaneous
  Country: US (occurrence: None)
  Receive Date: 20140926
  Receipt Date: 20140926
  Transmission Date: 20150326
  Serious: No
  Sender: FDA-Public Use
  Company Number: 1000068701

PATIENT
  Sex: Female

DRUGS (2)
  1. LIVALO (PITAVASTATIN CALCIUM) (PITAVASTATIN CALCIUM) [Concomitant]
  2. LINZESS [Suspect]
     Active Substance: LINACLOTIDE
     Indication: CONSTIPATION
     Route: 048

REACTIONS (2)
  - Muscle spasms [None]
  - Nausea [None]

NARRATIVE: CASE EVENT DATE: 201406
